FAERS Safety Report 7476879-6 (Version None)
Quarter: 2011Q2

REPORT INFORMATION
  Report Type: 
  Country: None (occurrence: None)
  Receive Date: 20110512
  Receipt Date: 20091122
  Transmission Date: 20111010
  Serious: Yes (Death, Hospitalization, Other)
  Sender: FDA-Public Use
  Company Number: US-BAYER-200939844NA

PATIENT
  Age: 72 Year
  Sex: Male
  Weight: 93 kg

DRUGS (16)
  1. TRASYLOL [Suspect]
     Indication: CORONARY ARTERY BYPASS
     Dosage: UNK
     Route: 042
     Dates: start: 20061015
  2. INTEGRILIN [Concomitant]
     Dosage: 17MG BOLUS TIMES TWO, THEN 15CC/HR
     Route: 042
     Dates: start: 20061014, end: 20061018
  3. ATROVENT [Concomitant]
     Dosage: 4 PUFF/4 TIMES DAILY
     Route: 045
     Dates: start: 20061018
  4. LISINOPRIL [Concomitant]
     Dosage: 20MG TWICE DAILY
     Route: 048
  5. FOSINOPRIL SODIUM [Concomitant]
     Dosage: 20MG TWICE DAILY, LONG TERM
     Route: 048
  6. LOVENOX [Concomitant]
     Dosage: 95MG EVERY 12 HRS
     Route: 058
     Dates: start: 20061014
  7. AMIODARONE HCL [Concomitant]
     Dosage: 400MG TWICE DAILY
     Route: 048
     Dates: start: 20061017
  8. LEVAQUIN [Concomitant]
     Dosage: 500MG DAILY
     Route: 042
     Dates: start: 20061019
  9. CARDURA [Concomitant]
     Dosage: 6MG TOTAL DAILY, LONG-TERM
     Route: 048
  10. METOPROLOL TARTRATE [Concomitant]
     Dosage: 50MG TWICE DAILY
     Route: 048
     Dates: start: 20061014
  11. LASIX [Concomitant]
  12. ACETYLSALICYLIC ACID SRT [Concomitant]
     Dosage: 81MG
     Route: 048
     Dates: start: 20061014
  13. ACETYLSALICYLIC ACID SRT [Concomitant]
     Dosage: 325MG, LONG TERM
     Route: 048
  14. NITROGLYCERIN [Concomitant]
  15. ALLOPURINOL [Concomitant]
     Dosage: 300MG TIMES TWO DOSES BEFORE SURGERY
     Route: 048
     Dates: start: 20061018
  16. RED BLOOD CELLS [Concomitant]
     Dosage: 4 UNITS

REACTIONS (13)
  - DEATH [None]
  - ANXIETY [None]
  - ANHEDONIA [None]
  - RENAL INJURY [None]
  - MULTI-ORGAN FAILURE [None]
  - STRESS [None]
  - UNEVALUABLE EVENT [None]
  - INJURY [None]
  - RENAL FAILURE [None]
  - RENAL IMPAIRMENT [None]
  - FEAR [None]
  - EMOTIONAL DISTRESS [None]
  - PAIN [None]
